FAERS Safety Report 19005116 (Version 2)
Quarter: 2021Q2

REPORT INFORMATION
  Report Type: Report from Study
  Country: FR (occurrence: FR)
  Receive Date: 20210312
  Receipt Date: 20210608
  Transmission Date: 20210717
  Serious: Yes (Other)
  Sender: FDA-Public Use
  Company Number: FR-US-PROVELL PHARMACEUTICALS LLC-9223371

PATIENT
  Sex: Female

DRUGS (3)
  1. LEVOTHYROX [Suspect]
     Active Substance: LEVOTHYROXINE
     Indication: PRODUCT USED FOR UNKNOWN INDICATION
     Dosage: 162 (UNSPECIFIED UNIT)
  2. LEVOTHYROX [Suspect]
     Active Substance: LEVOTHYROXINE
     Dosage: DOSE INCREASED, 175 (UNSPECIFIED UNIT)
     Dates: start: 2021, end: 2021
  3. LEVOTHYROX [Suspect]
     Active Substance: LEVOTHYROXINE
     Dosage: DOSE REDUCED, 162 (UNSPECIFIED UNIT)
     Dates: start: 2021

REACTIONS (6)
  - Self esteem decreased [Unknown]
  - Fatigue [Unknown]
  - Intentional product use issue [Unknown]
  - Thyroglobulin increased [Unknown]
  - Product dose omission in error [Unknown]
  - Neoplasm recurrence [Unknown]

NARRATIVE: CASE EVENT DATE: 2021
